FAERS Safety Report 7472442 (Version 2)
Quarter: 2012Q4

REPORT INFORMATION
  Report Type: 
  Country: US (occurrence: US)
  Receive Date: 20100714
  Receipt Date: 20120924
  Transmission Date: 20130627
  Serious: No
  Sender: FDA-Public Use
  Company Number: PHHY2010US33548

PATIENT
  Sex: Male

DRUGS (8)
  1. TASIGNA [Suspect]
     Indication: CHRONIC MYELOID LEUKAEMIA
     Dosage: 200 mg, QD
     Route: 048
     Dates: start: 20100505, end: 20100615
  2. ADVAIR [Concomitant]
     Dates: start: 20100505
  3. SPIRIVA [Concomitant]
     Dosage: 18 ug, QD
     Dates: start: 20100505
  4. SPIRIVA [Concomitant]
     Dosage: UNK
     Dates: start: 20100519
  5. SPIRIVA [Concomitant]
     Dosage: UNK
     Dates: start: 20100615
  6. PROAIR [Concomitant]
  7. ALBUTEROL SULFATE [Concomitant]
  8. SPRYCEL [Concomitant]

REACTIONS (11)
  - Hyperkeratosis [Unknown]
  - Constipation [Recovered/Resolved]
  - Muscle spasms [Recovered/Resolved]
  - Arthralgia [Recovered/Resolved]
  - Glomerular filtration rate decreased [Unknown]
  - White blood cell count decreased [Unknown]
  - Haemoglobin decreased [Unknown]
  - Lymphocyte count decreased [Unknown]
  - Mean cell haemoglobin decreased [Unknown]
  - Mean platelet volume decreased [Unknown]
  - Red cell distribution width increased [Unknown]
